FAERS Safety Report 22624300 (Version 1)
Quarter: 2023Q2

REPORT INFORMATION
  Report Type: Report from Study
  Country: US (occurrence: None)
  Receive Date: 20230621
  Receipt Date: 20230621
  Transmission Date: 20230722
  Serious: Yes (Other)
  Sender: FDA-Public Use
  Company Number: 2023A070244

PATIENT
  Sex: Female

DRUGS (5)
  1. CALQUENCE [Suspect]
     Active Substance: ACALABRUTINIB
     Indication: Chronic lymphocytic leukaemia
     Route: 048
     Dates: start: 20230306
  2. ALLOPURINOL [Concomitant]
     Active Substance: ALLOPURINOL
     Dosage: 2 REFILLS
     Route: 048
  3. ONDANSETRON [Concomitant]
     Active Substance: ONDANSETRON
     Route: 048
  4. PERCOCET [Concomitant]
     Active Substance: ACETAMINOPHEN\OXYCODONE HYDROCHLORIDE
     Dosage: 1.0DF EVERY 4 - 6 HOURS
     Route: 048
  5. PSEUDOEPHEDRINE [Concomitant]
     Active Substance: PSEUDOEPHEDRINE
     Dosage: 1.0DF EVERY 4 - 6 HOURS
     Route: 048

REACTIONS (7)
  - White blood cell count abnormal [Unknown]
  - Peripheral swelling [Unknown]
  - Pain in extremity [Unknown]
  - Sciatica [Unknown]
  - Headache [Unknown]
  - Rash macular [Unknown]
  - Rash [Unknown]
